FAERS Safety Report 23549017 (Version 2)
Quarter: 2024Q1

REPORT INFORMATION
  Report Type: Report from Study
  Country: US (occurrence: US)
  Receive Date: 20240221
  Receipt Date: 20240305
  Transmission Date: 20240410
  Serious: Yes (Other)
  Sender: FDA-Public Use
  Company Number: US-002147023-NVSC2024US034435

PATIENT
  Age: 65 Year
  Sex: Male

DRUGS (4)
  1. ENTRESTO [Suspect]
     Active Substance: SACUBITRIL\VALSARTAN
     Indication: Product used for unknown indication
     Dosage: 24/26 MG, BID
     Route: 048
  2. ENTRESTO [Suspect]
     Active Substance: SACUBITRIL\VALSARTAN
     Dosage: 97/103 MG, BID
     Route: 048
  3. ENTRESTO [Suspect]
     Active Substance: SACUBITRIL\VALSARTAN
     Dosage: 01 DOSAGE FORM, QD, 24/26 MG
     Route: 048
     Dates: start: 20240103
  4. ENTRESTO [Suspect]
     Active Substance: SACUBITRIL\VALSARTAN
     Dosage: 1 DOSAGE FORM, BID (24.26 MG ONE TABLET TWICE A DAY)
     Route: 048
     Dates: start: 20240103

REACTIONS (10)
  - Hypotension [Unknown]
  - Dizziness [Unknown]
  - Somnolence [Unknown]
  - Primary familial brain calcification [Unknown]
  - Gait disturbance [Unknown]
  - Speech disorder [Unknown]
  - Balance disorder [Unknown]
  - Wrong technique in product usage process [Recovered/Resolved]
  - Medication error [Recovered/Resolved]
  - Off label use [Recovered/Resolved]

NARRATIVE: CASE EVENT DATE: 20240101
